FAERS Safety Report 6055923-7 (Version None)
Quarter: 2009Q1

REPORT INFORMATION
  Report Type: 
  Country: None (occurrence: None)
  Receive Date: 20090128
  Receipt Date: 20090119
  Transmission Date: 20090719
  Serious: Yes (Hospitalization)
  Sender: FDA-Public Use
  Company Number: DE-ASTRAZENECA-2009PK00416

PATIENT
  Age: 84 Year
  Sex: Female
  Weight: 70.9 kg

DRUGS (9)
  1. LISINOPRIL PLUS HYDROCHLOROTHIAZIDE [Suspect]
     Indication: HYPERTENSION
     Dosage: 15/18.75 MG DAILY
     Route: 048
     Dates: end: 20080617
  2. AMLODIPINE [Interacting]
     Indication: HYPERTENSION
     Route: 048
  3. NITROGLYCERIN [Interacting]
     Indication: HYPERTENSION
     Route: 002
     Dates: end: 20080612
  4. METOPROLOL [Interacting]
     Indication: HYPERTENSION
     Route: 048
  5. MOXONIDINE [Interacting]
     Indication: HYPERTENSION
     Route: 048
  6. PANTOZOL [Concomitant]
     Indication: PROPHYLAXIS
     Route: 048
  7. ASPIRIN [Concomitant]
     Indication: INFARCTION
     Route: 048
     Dates: start: 20010101
  8. SIMVASTATIN [Concomitant]
     Indication: THROMBOSIS PROPHYLAXIS
     Route: 048
  9. KEPPRA [Concomitant]
     Indication: INFARCTION
     Route: 048

REACTIONS (2)
  - DRUG INTERACTION [None]
  - SYNCOPE [None]
